FAERS Safety Report 6076496-9 (Version None)
Quarter: 2009Q1

REPORT INFORMATION
  Report Type: 
  Country: None (occurrence: None)
  Receive Date: 20090213
  Receipt Date: 20090202
  Transmission Date: 20090719
  Serious: Yes (Hospitalization)
  Sender: FDA-Public Use
  Company Number: SE-JNJFOC-20060903927

PATIENT
  Sex: Female

DRUGS (7)
  1. REMICADE [Suspect]
     Route: 042
  2. REMICADE [Suspect]
     Route: 042
  3. REMICADE [Suspect]
     Indication: RHEUMATOID ARTHRITIS
     Route: 042
  4. ALVEDON [Concomitant]
     Route: 065
  5. METHOTREXATE [Concomitant]
     Route: 065
  6. BEHEPAN [Concomitant]
     Route: 065
  7. ORUDIS [Concomitant]
     Route: 065

REACTIONS (1)
  - MALIGNANT MELANOMA [None]
